FAERS Safety Report 7516256-2 (Version None)
Quarter: 2011Q2

REPORT INFORMATION
  Report Type: 
  Country: None (occurrence: None)
  Receive Date: 20110512
  Receipt Date: 20110301
  Transmission Date: 20111010
  Serious: Yes (Other)
  Sender: FDA-Public Use
  Company Number: US-JNJFOC-2010018966

PATIENT
  Age: 55 Year
  Sex: Female
  Weight: 56.7 kg

DRUGS (1)
  1. LISTERINE WHITENING QUICK DISSOLVING STRIPS (ORAL CARE PRODUCTS) FILMS [Suspect]
     Indication: DENTAL CARE
     Dosage: DAILY DOSE TEXT: UNSPECIFIED AS DIRECTED ORAL
     Route: 048
     Dates: start: 20100818, end: 20100819

REACTIONS (3)
  - DEVICE FAILURE [None]
  - TOOTH DISORDER [None]
  - TOOTH FRACTURE [None]
